FAERS Safety Report 24061299 (Version 3)
Quarter: 2024Q3

REPORT INFORMATION
  Report Type: Spontaneous
  Country: RU (occurrence: RU)
  Receive Date: 20240708
  Receipt Date: 20240806
  Transmission Date: 20241017
  Serious: Yes (Death, Hospitalization)
  Sender: DAIICHI
  Company Number: RU-AstraZeneca-2024-240102

PATIENT
  Sex: Female

DRUGS (1)
  1. TRASTUZUMAB DERUXTECAN [Suspect]
     Active Substance: TRASTUZUMAB DERUXTECAN
     Indication: Breast cancer metastatic
     Dosage: 5.4 MG/KG, ONCE EVERY 3 WK
     Route: 041

REACTIONS (2)
  - Pulmonary embolism [Fatal]
  - Pneumonia [Recovered/Resolved]
